FAERS Safety Report 25129538 (Version 2)
Quarter: 2025Q2

REPORT INFORMATION
  Report Type: Spontaneous
  Country: US (occurrence: US)
  Receive Date: 20250327
  Receipt Date: 20250609
  Transmission Date: 20250716
  Serious: No
  Sender: SANOFI AVENTIS
  Company Number: US-SA-2025SA088441

PATIENT
  Age: 58 Year
  Sex: Female

DRUGS (19)
  1. REZUROCK [Suspect]
     Active Substance: BELUMOSUDIL
     Indication: Chronic graft versus host disease
     Dosage: 200 MG, BID (200MG, 2 TIMES EVERY DAY)
     Route: 048
  2. REZUROCK [Suspect]
     Active Substance: BELUMOSUDIL
     Indication: Myelofibrosis
  3. ALBUTEROL SULFATE [Concomitant]
     Active Substance: ALBUTEROL SULFATE
  4. ATOVAQUONE\PROGUANIL [Concomitant]
     Active Substance: ATOVAQUONE\PROGUANIL
  5. DEXILANT [Concomitant]
     Active Substance: DEXLANSOPRAZOLE
  6. DEXILANT [Concomitant]
     Active Substance: DEXLANSOPRAZOLE
  7. ESTRADIOL [Concomitant]
     Active Substance: ESTRADIOL
  8. ESTRADIOL [Concomitant]
     Active Substance: ESTRADIOL
  9. FLONASE [Concomitant]
     Active Substance: FLUTICASONE PROPIONATE
  10. FLONASE [Concomitant]
     Active Substance: FLUTICASONE PROPIONATE
  11. GABAPENTIN [Concomitant]
     Active Substance: GABAPENTIN
  12. HYDROCHLOROTHIAZIDE [Concomitant]
     Active Substance: HYDROCHLOROTHIAZIDE
  13. LORAZEPAM [Concomitant]
     Active Substance: LORAZEPAM
  14. LOTEMAX [Concomitant]
     Active Substance: LOTEPREDNOL ETABONATE
  15. MONTELUKAST [Concomitant]
     Active Substance: MONTELUKAST
  16. PREDNISONE [Concomitant]
     Active Substance: PREDNISONE
  17. TACROLIMUS [Concomitant]
     Active Substance: TACROLIMUS
  18. SYNTHROID [Concomitant]
     Active Substance: LEVOTHYROXINE SODIUM
  19. HYDROCHLOROTHIAZIDE [Concomitant]
     Active Substance: HYDROCHLOROTHIAZIDE

REACTIONS (6)
  - Skin disorder [Recovering/Resolving]
  - Abdominal discomfort [Unknown]
  - Fatigue [Unknown]
  - Dyspnoea [Unknown]
  - Inappropriate schedule of product administration [Unknown]
  - Product use in unapproved indication [Unknown]
